FAERS Safety Report 11224166 (Version 1)
Quarter: 2015Q2

REPORT INFORMATION
  Report Type: Report from Study
  Country: IN (occurrence: IN)
  Receive Date: 20150629
  Receipt Date: 20150629
  Transmission Date: 20150821
  Serious: Yes (Death)
  Sender: FDA-Public Use
  Company Number: IN-ROCHE-1598053

PATIENT
  Sex: Female

DRUGS (3)
  1. AVASTIN [Suspect]
     Active Substance: BEVACIZUMAB
     Indication: OVARIAN CANCER
     Dosage: 300MG, ONCE IN 15 DAYS
     Route: 042
     Dates: start: 201412, end: 20150414
  2. IRINOTECAN [Suspect]
     Active Substance: IRINOTECAN
     Indication: OVARIAN CANCER
     Dosage: 100MG, ONCE IN 15 DAYS
     Route: 042
  3. PEMETREXED [Suspect]
     Active Substance: PEMETREXED
     Indication: OVARIAN CANCER
     Route: 065
     Dates: start: 20150508

REACTIONS (3)
  - Gastric fistula [Fatal]
  - Peritonitis [Fatal]
  - Vomiting [Unknown]
